FAERS Safety Report 5258868-5 (Version None)
Quarter: 2007Q1

REPORT INFORMATION
  Report Type: 
  Country: None (occurrence: None)
  Receive Date: 20061117
  Receipt Date: 20060313
  Transmission Date: 20070707
  Serious: Yes (Hospitalization, Other)
  Sender: FDA-Public Use
  Company Number: US-JNJFOC-20060202289

PATIENT
  Age: 60 Year
  Sex: Female
  Weight: 104.3273 kg

DRUGS (1)
  1. LEVAQUIN [Suspect]
     Indication: GASTROENTERITIS
     Dosage: 750 MG, ORAL
     Route: 048
     Dates: start: 20050701, end: 20050701

REACTIONS (2)
  - ANAPHYLACTIC SHOCK [None]
  - CHEST PAIN [None]
